FAERS Safety Report 7486599-X (Version None)
Quarter: 2011Q2

REPORT INFORMATION
  Report Type: 
  Country: None (occurrence: None)
  Receive Date: 20110517
  Receipt Date: 20100927
  Transmission Date: 20111010
  Serious: No
  Sender: FDA-Public Use
  Company Number: US-NOVEN-ALL1-2010-05108

PATIENT
  Sex: Male
  Weight: 35.374 kg

DRUGS (2)
  1. DAYTRANA [Suspect]
     Dosage: 30 MG, 1X/DAY:QD
     Route: 062
     Dates: start: 20100918
  2. DAYTRANA [Suspect]
     Dosage: 10 MG, 1X/DAY:QD
     Route: 062
     Dates: start: 20100925

REACTIONS (7)
  - THERAPEUTIC RESPONSE UNEXPECTED [None]
  - WRONG TECHNIQUE IN DRUG USAGE PROCESS [None]
  - DRUG EFFECT DELAYED [None]
  - PRODUCT QUALITY ISSUE [None]
  - APPLICATION SITE PRURITUS [None]
  - IMPULSIVE BEHAVIOUR [None]
  - OVERDOSE [None]
